FAERS Safety Report 8394170-0 (Version None)
Quarter: 2012Q2

REPORT INFORMATION
  Report Type: 
  Country: None (occurrence: None)
  Receive Date: 20120530
  Receipt Date: 20120517
  Transmission Date: 20120825
  Serious: Yes (Other)
  Sender: FDA-Public Use
  Company Number: US-US-EMD SERONO, INC.-7124282

PATIENT
  Sex: Female

DRUGS (2)
  1. STEROIDS [Concomitant]
     Indication: RHEUMATOID ARTHRITIS
  2. REBIF [Suspect]
     Indication: MULTIPLE SCLEROSIS
     Route: 058
     Dates: start: 20100811

REACTIONS (3)
  - LYMPHADENOPATHY [None]
  - FAT NECROSIS [None]
  - LYMPH NODE PAIN [None]
